FAERS Safety Report 5168281-7 (Version None)
Quarter: 2006Q4

REPORT INFORMATION
  Report Type: 
  Country: None (occurrence: None)
  Receive Date: 20061208
  Receipt Date: 20061130
  Transmission Date: 20070319
  Serious: Yes (Other)
  Sender: FDA-Public Use
  Company Number: GB-BRISTOL-MYERS SQUIBB COMPANY-13599766

PATIENT
  Age: 37 Year
  Sex: Male

DRUGS (2)
  1. SUSTIVA [Suspect]
     Indication: HIV INFECTION
     Dosage: STOPPED IN NOV-2006 AND RESTARTED ON 30-NOV-2006
     Dates: start: 20061001
  2. COMBIVIR [Concomitant]

REACTIONS (6)
  - BALANCE DISORDER [None]
  - CONFUSIONAL STATE [None]
  - DIZZINESS [None]
  - DRUG LEVEL DECREASED [None]
  - HEMIPLEGIA [None]
  - TUBERCULOSIS [None]
